FAERS Safety Report 5113247-6 (Version None)
Quarter: 2006Q3

REPORT INFORMATION
  Report Type: 
  Country: None (occurrence: None)
  Receive Date: 20060920
  Receipt Date: 20060905
  Transmission Date: 20061208
  Serious: Yes (Other)
  Sender: FDA-Public Use
  Company Number: 227558

PATIENT
  Age: 43 Year
  Sex: Male

DRUGS (3)
  1. RAPTIVA [Suspect]
     Indication: PSORIASIS
     Dosage: 125 MG, 1/WEEK, SUBCUTANEOUS
     Route: 058
     Dates: start: 20040101
  2. HUMALOG [Concomitant]
  3. PAIN MEDICATION (ANALGESIC NOS) [Concomitant]

REACTIONS (3)
  - DEMYELINATING POLYNEUROPATHY [None]
  - HYPOTONIA [None]
  - INJECTION SITE ANAESTHESIA [None]
